FAERS Safety Report 18535795 (Version 2)
Quarter: 2021Q1

REPORT INFORMATION
  Report Type: Spontaneous
  Country: CA (occurrence: CA)
  Receive Date: 20201123
  Receipt Date: 20210106
  Transmission Date: 20210419
  Serious: Yes (Other)
  Sender: FDA-Public Use
  Company Number: CA-SAMSUNG BIOEPIS-SB-2020-35122

PATIENT
  Age: 27 Year
  Sex: Male
  Weight: 70 kg

DRUGS (2)
  1. METHOTREXATE. [Concomitant]
     Active Substance: METHOTREXATE
     Indication: PRODUCT USED FOR UNKNOWN INDICATION
     Dosage: UNKNOWN
     Route: 065
  2. INFLIXIMAB [Suspect]
     Active Substance: INFLIXIMAB
     Indication: ANKYLOSING SPONDYLITIS
     Route: 042

REACTIONS (6)
  - Exposure to communicable disease [Unknown]
  - Exposure to SARS-CoV-2 [Unknown]
  - Intentional product use issue [Unknown]
  - COVID-19 [Unknown]
  - Patient isolation [Unknown]
  - Off label use [Unknown]
